FAERS Safety Report 5351142-8 (Version None)
Quarter: 2007Q2

REPORT INFORMATION
  Report Type: 
  Country: None (occurrence: None)
  Receive Date: 20070606
  Receipt Date: 20070529
  Transmission Date: 20071010
  Serious: Yes (Hospitalization)
  Sender: FDA-Public Use
  Company Number: 2007VX001523

PATIENT
  Age: 52 Year
  Sex: Female

DRUGS (5)
  1. INFERGEN [Suspect]
     Indication: HEPATITIS C
     Dosage: 9 UG;QOD;SC
     Route: 058
     Dates: start: 20070309
  2. VITAMIN CAP [Concomitant]
  3. SPIRONOLACTONE [Concomitant]
  4. PREVACID [Concomitant]
  5. NADOLOL [Concomitant]

REACTIONS (7)
  - ABDOMINAL DISTENSION [None]
  - DIARRHOEA [None]
  - DISTURBANCE IN ATTENTION [None]
  - FATIGUE [None]
  - HYPOTENSION [None]
  - PYREXIA [None]
  - WHITE BLOOD CELL COUNT DECREASED [None]
